FAERS Safety Report 13517581 (Version 1)
Quarter: 2017Q2

REPORT INFORMATION
  Report Type: Spontaneous
  Country: US (occurrence: US)
  Receive Date: 20170505
  Receipt Date: 20170505
  Transmission Date: 20170830
  Serious: Yes (Life-Threatening, Hospitalization)
  Sender: FDA-Public Use
  Company Number: None

PATIENT
  Age: 71 Year
  Sex: Male
  Weight: 84.3 kg

DRUGS (1)
  1. AMIODARONE [Suspect]
     Active Substance: AMIODARONE
     Indication: SURGERY
     Dosage: 30 MG PER HOUR IV
     Route: 042
     Dates: start: 20161129, end: 20161130

REACTIONS (2)
  - Acute lung injury [None]
  - Respiratory failure [None]

NARRATIVE: CASE EVENT DATE: 20161130
